FAERS Safety Report 5919383-6 (Version None)
Quarter: 2008Q4

REPORT INFORMATION
  Report Type: 
  Country: None (occurrence: None)
  Receive Date: 20081015
  Receipt Date: 20081010
  Transmission Date: 20090506
  Serious: Yes (Hospitalization)
  Sender: FDA-Public Use
  Company Number: B0539649A

PATIENT
  Age: 20 Year
  Sex: Male

DRUGS (4)
  1. SAWACILLIN [Suspect]
     Dosage: 250MG THREE TIMES PER DAY
     Route: 048
     Dates: start: 20060828, end: 20060905
  2. CEFAMEZIN [Suspect]
     Indication: DRUG USE FOR UNKNOWN INDICATION
     Route: 065
     Dates: start: 20060801, end: 20060801
  3. PENTCILLIN [Suspect]
     Dosage: 2G FOUR TIMES PER DAY
     Route: 042
     Dates: start: 20060828, end: 20060901
  4. UNKNOWN DRUG [Suspect]
     Indication: DRUG USE FOR UNKNOWN INDICATION
     Route: 065

REACTIONS (3)
  - DRUG ERUPTION [None]
  - PYREXIA [None]
  - RASH GENERALISED [None]
